FAERS Safety Report 5114589-0 (Version None)
Quarter: 2006Q3

REPORT INFORMATION
  Report Type: 
  Country: None (occurrence: None)
  Receive Date: 20060922
  Receipt Date: 20060922
  Transmission Date: 20061208
  Serious: Yes (Hospitalization)
  Sender: FDA-Public Use
  Company Number: None

PATIENT
  Age: 69 Year
  Sex: Male
  Weight: 73.4827 kg

DRUGS (1)
  1. WARFARIN SODIUM [Suspect]
     Dosage: 2.5  MG    T, TH, SAT, SUN   PO;   5MG    M, W, F   PO
     Route: 048
     Dates: start: 20051214, end: 20060914

REACTIONS (5)
  - COAGULOPATHY [None]
  - DRUG TOXICITY [None]
  - HAEMARTHROSIS [None]
  - INTERNATIONAL NORMALISED RATIO INCREASED [None]
  - JOINT SWELLING [None]
